FAERS Safety Report 20535396 (Version 1)
Quarter: 2022Q1

REPORT INFORMATION
  Report Type: Spontaneous
  Country: CA (occurrence: CA)
  Receive Date: 20220302
  Receipt Date: 20220302
  Transmission Date: 20220423
  Serious: Yes (Other)
  Sender: FDA-Public Use
  Company Number: CA-JNJFOC-20210930542

PATIENT
  Age: 63 Year
  Sex: Male

DRUGS (3)
  1. RISPERDAL [Interacting]
     Active Substance: RISPERIDONE
     Indication: Product used for unknown indication
     Route: 065
  2. LATUDA [Interacting]
     Active Substance: LURASIDONE HYDROCHLORIDE
     Indication: Product used for unknown indication
     Route: 065
  3. ATAZANAVIR [Interacting]
     Active Substance: ATAZANAVIR
     Indication: Antiviral treatment
     Route: 065

REACTIONS (2)
  - Parkinsonian gait [Unknown]
  - Drug interaction [Unknown]
